FAERS Safety Report 6070852-0 (Version None)
Quarter: 2009Q1

REPORT INFORMATION
  Report Type: 
  Country: None (occurrence: None)
  Receive Date: 20090209
  Receipt Date: 20081001
  Transmission Date: 20090719
  Serious: No
  Sender: FDA-Public Use
  Company Number: A0750045A

PATIENT
  Age: 31 Year
  Sex: Female

DRUGS (4)
  1. PAXIL [Suspect]
     Dosage: 40MG AT NIGHT
     Route: 048
     Dates: start: 20080801
  2. LIPITOR [Concomitant]
  3. ZANTAC [Concomitant]
  4. NEXIUM [Concomitant]

REACTIONS (2)
  - EYE PAIN [None]
  - HEADACHE [None]
